FAERS Safety Report 19691243 (Version 1)
Quarter: 2021Q3

REPORT INFORMATION
  Report Type: Spontaneous
  Country: US (occurrence: US)
  Receive Date: 20210812
  Receipt Date: 20210812
  Transmission Date: 20211014
  Serious: Yes (Death)
  Sender: FDA-Public Use
  Company Number: None

PATIENT
  Age: 81 Year
  Sex: Female
  Weight: 43.2 kg

DRUGS (11)
  1. PROCHLORPERAZINE 10MG [Concomitant]
  2. PROMACTA [Suspect]
     Active Substance: ELTROMBOPAG OLAMINE
     Indication: MYELODYSPLASTIC SYNDROME
     Route: 048
     Dates: start: 20210714, end: 20210812
  3. VITAMIN B12 [Concomitant]
     Active Substance: CYANOCOBALAMIN
  4. FERROUS SULFATE. [Concomitant]
     Active Substance: FERROUS SULFATE
  5. PREDNISONE 50MG [Concomitant]
     Active Substance: PREDNISONE
  6. MULTIVITAMIN [Concomitant]
     Active Substance: VITAMINS
  7. ZOFRAN [Concomitant]
     Active Substance: ONDANSETRON HYDROCHLORIDE
  8. MIRTAZAPINE 7.5MG [Concomitant]
     Active Substance: MIRTAZAPINE
  9. LIDOCAINE?PRILOCAINE [Concomitant]
     Active Substance: LIDOCAINE\PRILOCAINE
  10. TRAMADOL 50MG [Concomitant]
     Active Substance: TRAMADOL
  11. CENTRUM ADULTS [Concomitant]

REACTIONS (1)
  - Death [None]

NARRATIVE: CASE EVENT DATE: 20210812
